FAERS Safety Report 16443242 (Version 1)
Quarter: 2019Q2

REPORT INFORMATION
  Report Type: Spontaneous
  Country: US (occurrence: US)
  Receive Date: 20190618
  Receipt Date: 20190618
  Transmission Date: 20190711
  Serious: Yes (Other)
  Sender: FDA-Public Use
  Company Number: US-B.I. PHARMACEUTICALS,INC./RIDGEFIELD-2019-BI-026161

PATIENT
  Sex: Female

DRUGS (1)
  1. COMBIVENT [Suspect]
     Active Substance: ALBUTEROL SULFATE\IPRATROPIUM BROMIDE
     Indication: CHRONIC OBSTRUCTIVE PULMONARY DISEASE
     Dosage: STRENGTH AND UNIT DOSE: 20 MCG / 100 MCG;
     Route: 055
     Dates: start: 2015, end: 2015

REACTIONS (14)
  - Genital herpes simplex [Unknown]
  - Rhinorrhoea [Unknown]
  - Productive cough [Unknown]
  - Spinal pain [Unknown]
  - Back pain [Unknown]
  - Suicidal ideation [Unknown]
  - Oral herpes [Unknown]
  - Sneezing [Recovered/Resolved]
  - Sinus congestion [Unknown]
  - Pain [Unknown]
  - Insomnia [Unknown]
  - Musculoskeletal pain [Unknown]
  - Arthralgia [Unknown]
  - Cough [Unknown]

NARRATIVE: CASE EVENT DATE: 2015
